FAERS Safety Report 9386094 (Version 1)
Quarter: 2013Q3

REPORT INFORMATION
  Report Type: Spontaneous
  Country: US (occurrence: US)
  Receive Date: 20130706
  Receipt Date: 20130706
  Transmission Date: 20140515
  Serious: Yes (Other)
  Sender: FDA-Public Use
  Company Number: US-UCBSA-090692

PATIENT
  Sex: Male

DRUGS (2)
  1. CIMZIA [Suspect]
     Indication: RHEUMATOID ARTHRITIS
     Dosage: INDUCTION DOSE
     Dates: start: 201306, end: 201306
  2. HUMIRA [Concomitant]
     Indication: RHEUMATOID ARTHRITIS
     Dates: end: 201305

REACTIONS (1)
  - Thyroid cancer [Unknown]
